FAERS Safety Report 19721443 (Version 2)
Quarter: 2021Q3

REPORT INFORMATION
  Report Type: Spontaneous
  Country: PR (occurrence: PR)
  Receive Date: 20210819
  Receipt Date: 20210917
  Transmission Date: 20211014
  Serious: No
  Sender: FDA-Public Use
  Company Number: PR-PFIZER INC-2018067293

PATIENT
  Age: 7 Year
  Sex: Male
  Weight: 19.5 kg

DRUGS (3)
  1. GENOTROPIN [Suspect]
     Active Substance: SOMATROPIN
     Dosage: 0.8 MG, 1X/DAY [0.8 MG ONCE A DAY; 6 DAY/WEEK]
     Dates: start: 201702
  2. GENOTROPIN [Suspect]
     Active Substance: SOMATROPIN
     Indication: GROWTH HORMONE DEFICIENCY
     Dosage: 0.8 MG, UNK (0.8 MG INJECTION)
     Dates: start: 201703
  3. GENOTROPIN [Suspect]
     Active Substance: SOMATROPIN
     Dosage: 1.4 MG (NEEDLE SIX NIGHTS A WEEK ON EACH THIGHS, STOMACH NEXT TO BELLY BUTTON OR HIS BOTTOM)

REACTIONS (5)
  - Product dose omission issue [Unknown]
  - Device issue [Unknown]
  - Wrong technique in device usage process [Unknown]
  - Incorrect dose administered [Unknown]
  - Intentional device use issue [Unknown]

NARRATIVE: CASE EVENT DATE: 201802
